FAERS Safety Report 6758445-0 (Version None)
Quarter: 2010Q2

REPORT INFORMATION
  Report Type: 
  Country: None (occurrence: None)
  Receive Date: 20100607
  Receipt Date: 20100528
  Transmission Date: 20101027
  Serious: Yes (Hospitalization)
  Sender: FDA-Public Use
  Company Number: A0861989A

PATIENT
  Sex: Male

DRUGS (11)
  1. ADVAIR DISKUS 100/50 [Suspect]
     Indication: CHRONIC OBSTRUCTIVE PULMONARY DISEASE
     Dosage: 1PUFF PER DAY
     Route: 055
     Dates: start: 20090101
  2. PROVENTIL [Concomitant]
  3. LYRICA [Concomitant]
  4. LISINOPRIL [Concomitant]
  5. LOVAZA [Concomitant]
  6. LOVASTATIN [Concomitant]
  7. ARTHROTEC [Concomitant]
  8. ULTRAM [Concomitant]
  9. ZANAFLEX [Concomitant]
  10. XANAX [Concomitant]
  11. ASPIRIN [Concomitant]

REACTIONS (5)
  - HEADACHE [None]
  - HEART RATE INCREASED [None]
  - ILL-DEFINED DISORDER [None]
  - INAPPROPRIATE SCHEDULE OF DRUG ADMINISTRATION [None]
  - PYREXIA [None]
